FAERS Safety Report 6102786-7 (Version None)
Quarter: 2009Q1

REPORT INFORMATION
  Report Type: 
  Country: None (occurrence: None)
  Receive Date: 20090304
  Receipt Date: 20090302
  Transmission Date: 20090719
  Serious: No
  Sender: FDA-Public Use
  Company Number: US-B.I. PHARMACEUTICALS,INC./RIDGEFIELD-2009-BP-02546BP

PATIENT
  Sex: Female

DRUGS (1)
  1. MIRAPEX [Suspect]
     Indication: RESTLESS LEGS SYNDROME
     Dosage: .5MG
     Route: 048
     Dates: start: 20080101

REACTIONS (5)
  - DIPLOPIA [None]
  - DRY EYE [None]
  - PAIN IN EXTREMITY [None]
  - VISION BLURRED [None]
  - VISUAL IMPAIRMENT [None]
